FAERS Safety Report 5678848-5 (Version None)
Quarter: 2008Q1

REPORT INFORMATION
  Report Type: 
  Country: None (occurrence: None)
  Receive Date: 20080321
  Receipt Date: 20080313
  Transmission Date: 20080703
  Serious: Yes (Death, Hospitalization)
  Sender: FDA-Public Use
  Company Number: 2008US000737

PATIENT
  Age: 46 Year
  Sex: Male

DRUGS (15)
  1. PROGRAF [Suspect]
     Indication: RENAL TRANSPLANT
     Dosage: 4 MG, BID, ORAL; 6 MG, BID
     Route: 048
     Dates: start: 20080204, end: 20080312
  2. PROGRAF [Suspect]
     Indication: RENAL TRANSPLANT
     Dosage: 4 MG, BID, ORAL; 6 MG, BID
     Route: 048
     Dates: start: 20080306
  3. MYFORTIC [Concomitant]
  4. RAPAMUNE [Concomitant]
  5. LEAVQUIN (LEVOFLOXACIN) [Concomitant]
  6. REGLAN [Concomitant]
  7. ASPIRIN [Concomitant]
  8. DAPSONE [Concomitant]
  9. NORVASC (AMLODIPINE BESTILATE) [Concomitant]
  10. LABETALOL HCL [Concomitant]
  11. NYSTATIN [Concomitant]
  12. COLACE (DOCUSATE SODIUM) [Concomitant]
  13. ZOCOR [Concomitant]
  14. NYSTATIN W/TRIAMCINOLONE (NYSTATIN, TRIAMCINOLONE) [Concomitant]
  15. CELEXA [Concomitant]

REACTIONS (14)
  - ANAEMIA [None]
  - CARDIAC ARREST [None]
  - CHILLS [None]
  - CULTURE URINE POSITIVE [None]
  - DEHYDRATION [None]
  - DIARRHOEA [None]
  - HYDRONEPHROSIS [None]
  - KIDNEY TRANSPLANT REJECTION [None]
  - KLEBSIELLA INFECTION [None]
  - PULMONARY EMBOLISM [None]
  - PYREXIA [None]
  - SINUSITIS [None]
  - URINARY TRACT INFECTION [None]
  - URINE OUTPUT DECREASED [None]
